FAERS Safety Report 8698230 (Version 2)
Quarter: 2013Q4

REPORT INFORMATION
  Report Type: Spontaneous
  Country: US (occurrence: US)
  Receive Date: 20120802
  Receipt Date: 20131106
  Transmission Date: 20140711
  Serious: Yes (Hospitalization, Other)
  Sender: FDA-Public Use
  Company Number: US-009507513-1207USA012239

PATIENT
  Age: 76 Year
  Sex: Female

DRUGS (5)
  1. COZAAR [Suspect]
     Dosage: 1 DF, BID
     Route: 048
  2. FORADIL [Suspect]
  3. AMLODIPINE [Suspect]
     Dosage: 20 MG, UNK
  4. DOMPERIDONE [Concomitant]
     Dosage: 1 DF, UNK
  5. RANITIDINE [Concomitant]
     Dosage: 1 DF, PRN

REACTIONS (5)
  - Dyspnoea [Unknown]
  - Cardiac disorder [Unknown]
  - Fatigue [Unknown]
  - Swelling [Unknown]
  - Malaise [Unknown]
